FAERS Safety Report 10755292 (Version 2)
Quarter: 2015Q2

REPORT INFORMATION
  Report Type: Spontaneous
  Country: US (occurrence: US)
  Receive Date: 20150202
  Receipt Date: 20150417
  Transmission Date: 20150821
  Serious: Yes (Hospitalization)
  Sender: FDA-Public Use
  Company Number: US-BAYER-2015-013156

PATIENT
  Age: 30 Year
  Sex: Female
  Weight: 63.5 kg

DRUGS (4)
  1. YASMIN [Suspect]
     Active Substance: DROSPIRENONE\ETHINYL ESTRADIOL
     Indication: CONTRACEPTION
     Dosage: UNK
     Dates: start: 200508, end: 200702
  2. ADVAIR HFA [Concomitant]
     Active Substance: FLUTICASONE PROPIONATE\SALMETEROL XINAFOATE
     Indication: ASTHMA
     Dosage: UNK
     Dates: start: 2004
  3. ATIVAN [Concomitant]
     Active Substance: LORAZEPAM
  4. YASMIN [Suspect]
     Active Substance: DROSPIRENONE\ETHINYL ESTRADIOL
     Indication: CONTRACEPTION
     Dosage: UNK
     Dates: start: 200707, end: 20070804

REACTIONS (11)
  - Anxiety [None]
  - Confusional state [None]
  - Abnormal behaviour [None]
  - Bradyphrenia [None]
  - Dysarthria [None]
  - Aphasia [None]
  - Embolic stroke [Recovered/Resolved]
  - Thalamic infarction [None]
  - Fear of disease [None]
  - Speech disorder [None]
  - Disorientation [None]

NARRATIVE: CASE EVENT DATE: 20070803
